FAERS Safety Report 21265904 (Version 1)
Quarter: 2022Q3

REPORT INFORMATION
  Report Type: Spontaneous
  Country: US (occurrence: None)
  Receive Date: 20220828
  Receipt Date: 20220828
  Transmission Date: 20221027
  Serious: No
  Sender: FDA-Public Use
  Company Number: None

PATIENT
  Age: 27 Year
  Sex: Male
  Weight: 117 kg

DRUGS (5)
  1. SALINE NASAL [Suspect]
     Active Substance: SODIUM CHLORIDE
     Indication: Nasal inflammation
     Dates: start: 20220828, end: 20220828
  2. SALINE NASAL [Suspect]
     Active Substance: SODIUM CHLORIDE
     Indication: Rhinitis allergic
  3. IBUPROFEN [Concomitant]
     Active Substance: IBUPROFEN
  4. PHENYLEPHRINE [Concomitant]
     Active Substance: PHENYLEPHRINE HYDROCHLORIDE
  5. GUAIFENESIN [Concomitant]
     Active Substance: GUAIFENESIN

REACTIONS (4)
  - Throat irritation [None]
  - Nasal discomfort [None]
  - Flushing [None]
  - Application site reaction [None]

NARRATIVE: CASE EVENT DATE: 20220828
